FAERS Safety Report 4522997-1 (Version None)
Quarter: 2004Q4

REPORT INFORMATION
  Report Type: 
  Country: None (occurrence: None)
  Receive Date: 20041208
  Receipt Date: 20041125
  Transmission Date: 20050328
  Serious: Yes (Hospitalization)
  Sender: FDA-Public Use
  Company Number: 2004098923

PATIENT
  Age: 67 Year
  Sex: Male
  Weight: 110 kg

DRUGS (7)
  1. SORTIS (ATORVASTATIN) [Suspect]
     Indication: LIPID METABOLISM DISORDER
     Dosage: 10 MG (10 MG, 1 IN 1 D), ORAL
     Route: 048
     Dates: start: 20030715
  2. ASPIRIN [Concomitant]
  3. ELIDIUR (FOSINOPRIL SODIUM, HYDROCHLOROTHIAZIDE) [Concomitant]
  4. NITRENDIPINE (NITRENDIPINE) [Concomitant]
  5. GLYBURIDE [Concomitant]
  6. INSULIN [Concomitant]
  7. INSULIN HUMAN INJECTION, ISOPHANE (INSULIN HUMAN INJECTION, ISOPHANE) [Concomitant]

REACTIONS (1)
  - TENDON RUPTURE [None]
